FAERS Safety Report 12503664 (Version 2)
Quarter: 2016Q3

REPORT INFORMATION
  Report Type: Spontaneous
  Country: IE (occurrence: IE)
  Receive Date: 20160628
  Receipt Date: 20160708
  Transmission Date: 20161109
  Serious: Yes (Hospitalization)
  Sender: FDA-Public Use
  Company Number: IE-BRACCO-000199

PATIENT
  Age: 80 Year
  Sex: Male

DRUGS (1)
  1. NIOPAM [Suspect]
     Active Substance: IOPAMIDOL
     Indication: ARTERIOGRAM CORONARY
     Route: 013
     Dates: start: 20160615, end: 20160615

REACTIONS (2)
  - Agitation [Recovered/Resolved]
  - Amnesia [Recovered/Resolved]

NARRATIVE: CASE EVENT DATE: 20160615
